APPROVED DRUG PRODUCT: IBUPROFEN
Active Ingredient: IBUPROFEN
Strength: 100MG/5ML
Dosage Form/Route: SUSPENSION;ORAL
Application: A210149 | Product #001
Applicant: GUARDIAN DRUG CO
Approved: Aug 17, 2018 | RLD: No | RS: No | Type: OTC